FAERS Safety Report 24573460 (Version 2)
Quarter: 2025Q1

REPORT INFORMATION
  Report Type: Spontaneous
  Country: CA (occurrence: CA)
  Receive Date: 20241102
  Receipt Date: 20250305
  Transmission Date: 20250408
  Serious: Yes (Other)
  Sender: CELLTRION
  Company Number: CA-PFIZER INC-202200867547

PATIENT

DRUGS (23)
  1. INFLECTRA [Suspect]
     Active Substance: INFLIXIMAB-DYYB
     Indication: Colitis ulcerative
     Route: 042
     Dates: start: 20220627
  2. INFLECTRA [Suspect]
     Active Substance: INFLIXIMAB-DYYB
     Route: 042
     Dates: start: 20220627
  3. INFLECTRA [Suspect]
     Active Substance: INFLIXIMAB-DYYB
     Dates: start: 20220822
  4. INFLECTRA [Suspect]
     Active Substance: INFLIXIMAB-DYYB
  5. INFLECTRA [Suspect]
     Active Substance: INFLIXIMAB-DYYB
  6. INFLECTRA [Suspect]
     Active Substance: INFLIXIMAB-DYYB
  7. INFLECTRA [Suspect]
     Active Substance: INFLIXIMAB-DYYB
  8. INFLECTRA [Suspect]
     Active Substance: INFLIXIMAB-DYYB
  9. INFLECTRA [Suspect]
     Active Substance: INFLIXIMAB-DYYB
  10. INFLECTRA [Suspect]
     Active Substance: INFLIXIMAB-DYYB
     Dates: start: 20240103
  11. INFLECTRA [Suspect]
     Active Substance: INFLIXIMAB-DYYB
     Dates: start: 20240312
  12. INFLECTRA [Suspect]
     Active Substance: INFLIXIMAB-DYYB
     Route: 042
  13. INFLECTRA [Suspect]
     Active Substance: INFLIXIMAB-DYYB
  14. INFLECTRA [Suspect]
     Active Substance: INFLIXIMAB-DYYB
  15. ESTRADIOL [Concomitant]
     Active Substance: ESTRADIOL
  16. PROGESTERONE [Concomitant]
     Active Substance: PROGESTERONE
  17. OMEPRAZOLE [Concomitant]
     Active Substance: OMEPRAZOLE
  18. CALCIUM [Concomitant]
     Active Substance: CALCIUM
  19. VITAMIN D NOS [Concomitant]
     Active Substance: CHOLECALCIFEROL\ERGOCALCIFEROL
  20. IRBESARTAN [Concomitant]
     Active Substance: IRBESARTAN
  21. JANUVIA [Concomitant]
     Active Substance: SITAGLIPTIN PHOSPHATE
  22. LYRICA [Concomitant]
     Active Substance: PREGABALIN
     Indication: Sciatic nerve neuropathy
  23. LYRICA [Concomitant]
     Active Substance: PREGABALIN

REACTIONS (16)
  - Cataract [Unknown]
  - Spinal stenosis [Not Recovered/Not Resolved]
  - Osteoarthritis [Unknown]
  - Dizziness [Recovered/Resolved]
  - Nausea [Unknown]
  - Joint swelling [Unknown]
  - COVID-19 [Unknown]
  - Blood cholesterol increased [Unknown]
  - Nasal congestion [Not Recovered/Not Resolved]
  - Scoliosis [Not Recovered/Not Resolved]
  - Joint effusion [Not Recovered/Not Resolved]
  - Bronchitis [Recovered/Resolved]
  - Nasopharyngitis [Recovered/Resolved]
  - Off label use [Unknown]
  - Intentional product use issue [Unknown]
  - Inappropriate schedule of product administration [Unknown]

NARRATIVE: CASE EVENT DATE: 20220801
